FAERS Safety Report 8784402 (Version 3)
Quarter: 2012Q4

REPORT INFORMATION
  Report Type: 
  Country: US (occurrence: US)
  Receive Date: 20120913
  Receipt Date: 20121024
  Transmission Date: 20130627
  Serious: No
  Sender: FDA-Public Use
  Company Number: US-PFIZER INC-2012223725

PATIENT
  Sex: Male

DRUGS (2)
  1. LYRICA [Suspect]
  2. LYRICA [Suspect]
     Dosage: 75 mg, 2x/day
     Route: 048

REACTIONS (1)
  - Stress [Unknown]
